FAERS Safety Report 8214764-2 (Version None)
Quarter: 2012Q1

REPORT INFORMATION
  Report Type: 
  Country: None (occurrence: None)
  Receive Date: 20120316
  Receipt Date: 20120302
  Transmission Date: 20120608
  Serious: Yes (Other)
  Sender: FDA-Public Use
  Company Number: SE-ELI_LILLY_AND_COMPANY-SE201203001997

PATIENT
  Age: 17 Year
  Sex: Male

DRUGS (3)
  1. OMEPRAZOLE [Concomitant]
  2. STRATTERA [Suspect]
     Dosage: 60 MG, QD
     Route: 048
     Dates: start: 20120113, end: 20120126
  3. CIRCADIN [Concomitant]
     Dosage: 2 MG, UNKNOWN

REACTIONS (2)
  - JAUNDICE [None]
  - HYPERBILIRUBINAEMIA [None]
